FAERS Safety Report 13967973 (Version 1)
Quarter: 2017Q3

REPORT INFORMATION
  Report Type: Spontaneous
  Country: US (occurrence: US)
  Receive Date: 20170914
  Receipt Date: 20170914
  Transmission Date: 20171128
  Serious: Yes (Other)
  Sender: FDA-Public Use
  Company Number: US-TEVA-805310USA

PATIENT
  Sex: Female

DRUGS (1)
  1. NICOTINE. [Suspect]
     Active Substance: NICOTINE
     Indication: SMOKING CESSATION THERAPY
     Route: 065
     Dates: start: 201706, end: 20170830

REACTIONS (12)
  - Dizziness [Recovered/Resolved]
  - Fracture [Recovered/Resolved]
  - Vomiting [Recovered/Resolved]
  - Laceration [Recovered/Resolved]
  - Nausea [Recovered/Resolved]
  - Heart rate increased [Recovered/Resolved]
  - Hand fracture [Recovered/Resolved]
  - Nightmare [Recovered/Resolved]
  - Rib fracture [Recovered/Resolved]
  - Panic attack [Recovered/Resolved]
  - Spinal fracture [Recovered/Resolved]
  - Fall [Recovered/Resolved]

NARRATIVE: CASE EVENT DATE: 2017
